FAERS Safety Report 14742030 (Version 1)
Quarter: 2018Q2

REPORT INFORMATION
  Report Type: Spontaneous
  Country: US (occurrence: US)
  Receive Date: 20180404
  Receipt Date: 20180404
  Transmission Date: 20180711
  Serious: Yes (Hospitalization)
  Sender: FDA-Public Use
  Company Number: None

PATIENT
  Age: 80 Year
  Sex: Male
  Weight: 74.84 kg

DRUGS (10)
  1. METROPOLOL [Concomitant]
     Active Substance: METOPROLOL
  2. LASIX [Concomitant]
     Active Substance: FUROSEMIDE
  3. VITAMIN D3 [Concomitant]
     Active Substance: CHOLECALCIFEROL
  4. MAGNESIUM [Concomitant]
     Active Substance: MAGNESIUM
  5. PRILOSEC [Concomitant]
     Active Substance: OMEPRAZOLE MAGNESIUM
  6. METALOZONE [Concomitant]
  7. SPIRONOLACTION [Concomitant]
  8. ENTRESTO [Suspect]
     Active Substance: SACUBITRIL\VALSARTAN
     Indication: CARDIAC FAILURE CONGESTIVE
     Route: 048
  9. VITAMIN B12 [Concomitant]
     Active Substance: CYANOCOBALAMIN
  10. BABY ASPIRIN [Concomitant]
     Active Substance: ASPIRIN

REACTIONS (9)
  - Hypotension [None]
  - Asthenia [None]
  - Nervousness [None]
  - Weight increased [None]
  - Somnolence [None]
  - Decreased appetite [None]
  - Oedema peripheral [None]
  - Fatigue [None]
  - Urosepsis [None]

NARRATIVE: CASE EVENT DATE: 20180131
